FAERS Safety Report 17857687 (Version 14)
Quarter: 2021Q3

REPORT INFORMATION
  Report Type: Spontaneous
  Country: CA (occurrence: CA)
  Receive Date: 20200604
  Receipt Date: 20210927
  Transmission Date: 20211014
  Serious: Yes (Other)
  Sender: FDA-Public Use
  Company Number: CA-CELLTRION INC.-2019CA023780

PATIENT

DRUGS (30)
  1. INFLECTRA [Suspect]
     Active Substance: INFLIXIMAB-DYYB
     Dosage: 10 MG/KG, 0, 1, 5, THEN EVERY 4 WEEKS
     Route: 042
     Dates: start: 20200312
  2. INFLECTRA [Suspect]
     Active Substance: INFLIXIMAB-DYYB
     Dosage: 10 MG/KG, 0, 1, 5, THEN EVERY 4 WEEKS
     Route: 042
     Dates: start: 20210106
  3. INFLECTRA [Suspect]
     Active Substance: INFLIXIMAB-DYYB
     Dosage: 580 MG EVERY 4 WEEK
     Route: 042
     Dates: start: 20210303
  4. INFLECTRA [Suspect]
     Active Substance: INFLIXIMAB-DYYB
     Dosage: 580 MG EVERY 4 WEEK
     Route: 042
     Dates: start: 20210303
  5. INFLECTRA [Suspect]
     Active Substance: INFLIXIMAB-DYYB
     Dosage: 10 MG/KG, 0, 1, 5, THEN EVERY 4 WEEKS
     Route: 042
     Dates: start: 20190808
  6. INFLECTRA [Suspect]
     Active Substance: INFLIXIMAB-DYYB
     Dosage: 10 MG/KG, 0, 1, 5, THEN EVERY 4 WEEKS
     Route: 042
     Dates: start: 20191128
  7. INFLECTRA [Suspect]
     Active Substance: INFLIXIMAB-DYYB
     Dosage: 10 MG/KG, 0, 1, 5, THEN EVERY 4 WEEKS
     Route: 042
     Dates: start: 20191220
  8. INFLECTRA [Suspect]
     Active Substance: INFLIXIMAB-DYYB
     Dosage: 7.5 MG/KG, EVERY 4 WEEK
     Route: 042
     Dates: start: 20210529
  9. INFLECTRA [Suspect]
     Active Substance: INFLIXIMAB-DYYB
     Dosage: 10 MG/KG, 0, 1, 5, THEN EVERY 4 WEEKS
     Route: 042
     Dates: start: 20190903
  10. INFLECTRA [Suspect]
     Active Substance: INFLIXIMAB-DYYB
     Dosage: 10 MG/KG, 0, 1, 5, THEN EVERY 4 WEEKS
     Route: 042
     Dates: start: 20200507
  11. INFLECTRA [Suspect]
     Active Substance: INFLIXIMAB-DYYB
     Dosage: 10 MG/KG, 0, 1, 5, THEN EVERY 4 WEEKS
     Route: 042
     Dates: start: 20201028
  12. INFLECTRA [Suspect]
     Active Substance: INFLIXIMAB-DYYB
     Dosage: 10 MG/KG, 0, 1, 5, THEN EVERY 4 WEEKS
     Route: 042
     Dates: start: 20201028
  13. INFLECTRA [Suspect]
     Active Substance: INFLIXIMAB-DYYB
     Dosage: 10 MG/KG, 0, 1, 5, THEN EVERY 4 WEEKS
     Route: 042
     Dates: start: 20200116
  14. INFLECTRA [Suspect]
     Active Substance: INFLIXIMAB-DYYB
     Dosage: 10 MG/KG, 0, 1, 5, THEN EVERY 4 WEEKS
     Route: 042
     Dates: start: 20200702
  15. INFLECTRA [Suspect]
     Active Substance: INFLIXIMAB-DYYB
     Dosage: 400 MG,EVERY 4 WEEK
     Route: 042
     Dates: start: 20210915
  16. INFLECTRA [Suspect]
     Active Substance: INFLIXIMAB-DYYB
     Dosage: 10 MG/KG, 0, 1, 5, THEN EVERY 4 WEEKS
     Route: 042
     Dates: start: 20200805
  17. INFLECTRA [Suspect]
     Active Substance: INFLIXIMAB-DYYB
     Dosage: 10 MG/KG, 0, 1, 5, THEN EVERY 4 WEEKS
     Route: 042
     Dates: start: 20200902
  18. INFLECTRA [Suspect]
     Active Substance: INFLIXIMAB-DYYB
     Dosage: 10 MG/KG, 0, 1, 5, THEN EVERY 4 WEEKS
     Route: 042
     Dates: start: 20210203
  19. INFLECTRA [Suspect]
     Active Substance: INFLIXIMAB-DYYB
     Dosage: 10 MG/KG EVERY 4 WEEKS
     Route: 042
     Dates: start: 20210428
  20. INFLECTRA [Suspect]
     Active Substance: INFLIXIMAB-DYYB
     Indication: COLITIS ULCERATIVE
     Dosage: 10 MG/KG, 0, 1, 5, THEN EVERY 4 WEEKS
     Route: 042
     Dates: start: 20190801
  21. INFLECTRA [Suspect]
     Active Substance: INFLIXIMAB-DYYB
     Dosage: 10 MG/KG, 0, 1, 5, THEN EVERY 4 WEEKS
     Route: 042
     Dates: start: 20191029
  22. CORTISONE [Concomitant]
     Active Substance: CORTISONE
     Dosage: 15 MG, DAILY (WITHDRAWAL)
     Route: 065
  23. BUDESONIDE. [Concomitant]
     Active Substance: BUDESONIDE
     Dosage: UNK (FOR 8 WEEKS)
     Dates: start: 20200317
  24. INFLECTRA [Suspect]
     Active Substance: INFLIXIMAB-DYYB
     Dosage: 10 MG/KG, 0, 1, 5, THEN EVERY 4 WEEKS
     Route: 042
     Dates: start: 20191001
  25. INFLECTRA [Suspect]
     Active Substance: INFLIXIMAB-DYYB
     Dosage: 10 MG/KG, 0, 1, 5, THEN EVERY 4 WEEKS
     Route: 042
     Dates: start: 20201124
  26. INFLECTRA [Suspect]
     Active Substance: INFLIXIMAB-DYYB
     Dosage: 10 MG/KG, 0, 1, 5, THEN EVERY 4 WEEKS
     Route: 042
     Dates: start: 20200604
  27. INFLECTRA [Suspect]
     Active Substance: INFLIXIMAB-DYYB
     Dosage: 10 MG/KG EVERY 4 WEEKS
     Route: 042
     Dates: start: 20210428
  28. CALCIUM [Concomitant]
     Active Substance: CALCIUM
     Dosage: UNKNOWN
     Route: 065
  29. VENOFER [Concomitant]
     Active Substance: IRON SUCROSE
     Dosage: 15 MG, WEEKLY
     Route: 042
     Dates: start: 20190827, end: 20190827
  30. FOLIC ACID. [Concomitant]
     Active Substance: FOLIC ACID
     Dosage: UNK
     Route: 065
     Dates: start: 201909

REACTIONS (18)
  - Nephrolithiasis [Unknown]
  - Blood pressure decreased [Unknown]
  - Heart rate decreased [Unknown]
  - SARS-CoV-2 test positive [Recovered/Resolved with Sequelae]
  - Off label use [Unknown]
  - Incorrect dose administered [Unknown]
  - Cough [Not Recovered/Not Resolved]
  - Influenza like illness [Unknown]
  - Back pain [Unknown]
  - Oropharyngeal pain [Recovered/Resolved]
  - Off label use [Unknown]
  - COVID-19 [Recovered/Resolved with Sequelae]
  - Drug level increased [Unknown]
  - Intentional product use issue [Unknown]
  - Oropharyngeal pain [Recovered/Resolved]
  - Weight increased [Unknown]
  - Throat irritation [Not Recovered/Not Resolved]
  - Lymphadenopathy [Unknown]

NARRATIVE: CASE EVENT DATE: 201909
